FAERS Safety Report 11524970 (Version 1)
Quarter: 2015Q3

REPORT INFORMATION
  Report Type: Spontaneous
  Country: FR (occurrence: FR)
  Receive Date: 20150918
  Receipt Date: 20150918
  Transmission Date: 20151125
  Serious: Yes (Death, Other)
  Sender: FDA-Public Use
  Company Number: PHHY2015FR112174

PATIENT

DRUGS (2)
  1. CICLOSPORIN [Suspect]
     Active Substance: CYCLOSPORINE
     Indication: IMMUNOSUPPRESSION
  2. CICLOSPORIN [Suspect]
     Active Substance: CYCLOSPORINE
     Indication: STEM CELL TRANSPLANT
     Route: 065

REACTIONS (6)
  - Thrombotic microangiopathy [Unknown]
  - Hypertension [Unknown]
  - Epstein-Barr virus infection [Unknown]
  - Acute graft versus host disease [Fatal]
  - Renal failure [Unknown]
  - Bacterial infection [Fatal]
